FAERS Safety Report 8235996-3 (Version None)
Quarter: 2012Q1

REPORT INFORMATION
  Report Type: 
  Country: None (occurrence: None)
  Receive Date: 20120326
  Receipt Date: 20120316
  Transmission Date: 20120608
  Serious: Yes (Hospitalization, Other)
  Sender: FDA-Public Use
  Company Number: FR-ASTRAZENECA-2012SE10157

PATIENT
  Age: 16325 Day
  Sex: Female

DRUGS (5)
  1. VENLAFAXINE [Concomitant]
  2. QUETIAPINE FUMARATE [Suspect]
     Indication: BIPOLAR DISORDER
     Route: 048
     Dates: start: 20111210
  3. ALPRAZOLAM [Concomitant]
  4. NOVAMIDE [Concomitant]
  5. OXAZEPAM [Concomitant]

REACTIONS (3)
  - BLOOD TRIGLYCERIDES INCREASED [None]
  - BLOOD CHOLESTEROL INCREASED [None]
  - HEPATITIS [None]
